FAERS Safety Report 7205809-7 (Version None)
Quarter: 2010Q4

REPORT INFORMATION
  Report Type: 
  Country: None (occurrence: None)
  Receive Date: 20101231
  Receipt Date: 20101221
  Transmission Date: 20110411
  Serious: Yes (Other)
  Sender: FDA-Public Use
  Company Number: FR-MERCK-1012FRA00160

PATIENT
  Age: 60 Year
  Sex: Female

DRUGS (4)
  1. ZETIA [Suspect]
     Indication: HYPERCHOLESTEROLAEMIA
     Route: 048
  2. PHENOBARBITAL [Concomitant]
     Route: 065
  3. SIMVASTATIN [Concomitant]
     Indication: HYPERCHOLESTEROLAEMIA
     Route: 048
  4. CARBAMAZEPINE [Concomitant]
     Route: 065

REACTIONS (1)
  - CONVULSION [None]
